FAERS Safety Report 5354663-7 (Version None)
Quarter: 2007Q2

REPORT INFORMATION
  Report Type: 
  Country: None (occurrence: None)
  Receive Date: 20070612
  Receipt Date: 20070531
  Transmission Date: 20071010
  Serious: Yes (Disabling)
  Sender: FDA-Public Use
  Company Number: US-ASTRAZENECA-2006UW04335

PATIENT
  Age: 11240 Day
  Sex: Male
  Weight: 93.2 kg

DRUGS (4)
  1. SEROQUEL [Suspect]
     Indication: DEPRESSION
     Route: 048
     Dates: start: 20011012
  2. SEROQUEL [Suspect]
     Indication: SCHIZOPHRENIA
     Route: 048
     Dates: start: 20011012
  3. ABILIFY [Concomitant]
     Dates: start: 20070410
  4. RISPERDAL [Concomitant]
     Dates: start: 19980505, end: 20010803

REACTIONS (1)
  - DIABETES MELLITUS [None]
